FAERS Safety Report 9768019 (Version 1)
Quarter: 2013Q4

REPORT INFORMATION
  Report Type: Spontaneous
  Country: US (occurrence: None)
  Receive Date: 20131217
  Receipt Date: 20131217
  Transmission Date: 20140711
  Serious: No
  Sender: FDA-Public Use
  Company Number: PHEH2013US007599

PATIENT
  Sex: Female

DRUGS (1)
  1. SIGNIFOR (PASIREOTIDE) UNKNOWN [Suspect]

REACTIONS (5)
  - Gastrointestinal disorder [None]
  - Headache [None]
  - Diarrhoea [None]
  - Nausea [None]
  - Abdominal pain [None]
